FAERS Safety Report 7988645-3 (Version None)
Quarter: 2011Q4

REPORT INFORMATION
  Report Type: 
  Country: None (occurrence: None)
  Receive Date: 20111218
  Receipt Date: 20111207
  Transmission Date: 20120403
  Serious: Yes (Hospitalization, Other)
  Sender: FDA-Public Use
  Company Number: US-ASTRAZENECA-2011SE52883

PATIENT
  Age: 53 Year
  Sex: Male
  Weight: 83.9 kg

DRUGS (12)
  1. LISINOPRIL [Concomitant]
  2. CLONIDINE [Concomitant]
  3. SEROQUEL [Suspect]
     Indication: BIPOLAR DISORDER
     Route: 048
     Dates: start: 20080101
  4. NIACIN [Concomitant]
  5. VITAMIN D [Concomitant]
  6. EMETRIPTALINE HCL [Concomitant]
  7. VIT B [Concomitant]
  8. SIMVASTATIN [Concomitant]
  9. XANAX [Concomitant]
  10. METOPROLOL TARTRATE [Concomitant]
  11. ASPIRIN [Concomitant]
  12. LORAZEPAM [Concomitant]

REACTIONS (9)
  - HYPERTENSION [None]
  - DRUG INEFFECTIVE [None]
  - MYOCARDIAL INFARCTION [None]
  - BIPOLAR DISORDER [None]
  - CEREBROVASCULAR ACCIDENT [None]
  - HEART VALVE INCOMPETENCE [None]
  - BIPOLAR I DISORDER [None]
  - IMPATIENCE [None]
  - IRRITABILITY [None]
